FAERS Safety Report 6110701-5 (Version None)
Quarter: 2009Q1

REPORT INFORMATION
  Report Type: 
  Country: None (occurrence: None)
  Receive Date: 20090309
  Receipt Date: 20090303
  Transmission Date: 20090719
  Serious: Yes (Life-Threatening, Hospitalization)
  Sender: FDA-Public Use
  Company Number: ADE2009-0462

PATIENT
  Age: 12 Month
  Sex: Male
  Weight: 10 kg

DRUGS (1)
  1. ONDANSETRON HYDROCHLORIDE TABLETS [Suspect]
     Dosage: 8 MG

REACTIONS (11)
  - ACCIDENTAL DRUG INTAKE BY CHILD [None]
  - BODY TEMPERATURE INCREASED [None]
  - DEPRESSED LEVEL OF CONSCIOUSNESS [None]
  - DYSKINESIA [None]
  - HEART RATE INCREASED [None]
  - MYOCLONUS [None]
  - NYSTAGMUS [None]
  - RESPIRATORY RATE INCREASED [None]
  - SEDATION [None]
  - SOMNOLENCE [None]
  - STRIDOR [None]
